FAERS Safety Report 12527096 (Version 1)
Quarter: 2016Q3

REPORT INFORMATION
  Report Type: Spontaneous
  Country: US (occurrence: US)
  Receive Date: 20160705
  Receipt Date: 20160705
  Transmission Date: 20161109
  Serious: Yes (Other)
  Sender: FDA-Public Use
  Company Number: US-RECKITT BENCKISER HEALTHCARE INT LIMITED-RB-87542-2016

PATIENT
  Age: 16 Year
  Sex: Male

DRUGS (1)
  1. UNSPECIFIED DEXTROMETHORPHAN HYDROBROMIDE [Suspect]
     Active Substance: DEXTROMETHORPHAN HYDROBROMIDE
     Indication: DRUG ABUSE
     Dosage: INGESTED 300 MG
     Route: 048

REACTIONS (3)
  - Mania [Recovered/Resolved]
  - Drug abuse [Recovered/Resolved]
  - Bipolar disorder [Recovered/Resolved]
